FAERS Safety Report 8830836 (Version 4)
Quarter: 2014Q3

REPORT INFORMATION
  Report Type: Spontaneous
  Country: US (occurrence: US)
  Receive Date: 20121009
  Receipt Date: 20140821
  Transmission Date: 20150326
  Serious: Yes (Hospitalization, Other)
  Sender: FDA-Public Use
  Company Number: US-009507513-2012SP028991

PATIENT
  Sex: Female
  Weight: 79.37 kg

DRUGS (2)
  1. NUVARING [Suspect]
     Active Substance: ETHINYL ESTRADIOL\ETONOGESTREL
     Indication: LIBIDO DECREASED
  2. NUVARING [Suspect]
     Active Substance: ETHINYL ESTRADIOL\ETONOGESTREL
     Indication: CONTRACEPTION
     Dosage: INSERT VAGINALLY + LEAVE IN PLACE X 3 WEEKS, REMOVE FOR 1 WEEK
     Route: 067
     Dates: start: 20100617, end: 20100801

REACTIONS (14)
  - Costochondritis [Unknown]
  - Weight decreased [Unknown]
  - Asthenia [Unknown]
  - Breast enlargement [Unknown]
  - Pulmonary embolism [Recovered/Resolved]
  - Depression [Not Recovered/Not Resolved]
  - Off label use [Unknown]
  - Smear cervix abnormal [Unknown]
  - Back pain [Unknown]
  - Headache [Not Recovered/Not Resolved]
  - Gastritis [Unknown]
  - Eustachian tube dysfunction [Unknown]
  - Melanocytic naevus [Unknown]
  - Thrombocytosis [Unknown]

NARRATIVE: CASE EVENT DATE: 2010
